FAERS Safety Report 8762159 (Version 2)
Quarter: 2012Q4

REPORT INFORMATION
  Report Type: 
  Country: ES (occurrence: ES)
  Receive Date: 20120830
  Receipt Date: 20120907
  Transmission Date: 20130627
  Serious: Yes (Other)
  Sender: FDA-Public Use
  Company Number: PHHY2012ES073134

PATIENT
  Age: 27 Year
  Sex: Female

DRUGS (3)
  1. GILENYA [Suspect]
     Dosage: 0.5 mg, QD
     Route: 048
     Dates: start: 201202, end: 20120727
  2. GILENYA [Suspect]
     Dosage: 0.5 mg, QD
     Route: 048
     Dates: start: 20120802
  3. CLEXANE [Concomitant]

REACTIONS (5)
  - Thrombosis [Recovered/Resolved]
  - Pain [Unknown]
  - Oedema peripheral [Unknown]
  - Gait disturbance [Unknown]
  - Fibrin D dimer increased [Unknown]
